FAERS Safety Report 15335950 (Version 1)
Quarter: 2018Q3

REPORT INFORMATION
  Report Type: Spontaneous
  Country: US (occurrence: US)
  Receive Date: 20180827
  Receipt Date: 20180827
  Transmission Date: 20181010
  Serious: No
  Sender: FDA-Public Use
  Company Number: None

PATIENT
  Sex: Male
  Weight: 47.7 kg

DRUGS (2)
  1. DAYTRANA [Suspect]
     Active Substance: METHYLPHENIDATE
     Indication: ATTENTION DEFICIT/HYPERACTIVITY DISORDER
     Route: 062
     Dates: start: 20180716, end: 20180815
  2. DAYTRANA [Concomitant]
     Active Substance: METHYLPHENIDATE
     Dates: start: 20180716, end: 20180815

REACTIONS (3)
  - Device adhesion issue [None]
  - Application site pain [None]
  - Device difficult to use [None]
